FAERS Safety Report 21471570 (Version 1)
Quarter: 2022Q4

REPORT INFORMATION
  Report Type: Spontaneous
  Country: DK (occurrence: None)
  Receive Date: 20221018
  Receipt Date: 20221018
  Transmission Date: 20230113
  Serious: Yes (Hospitalization)
  Sender: FDA-Public Use
  Company Number: 2022A341898

PATIENT
  Age: 74 Year
  Sex: Male
  Weight: 71 kg

DRUGS (1)
  1. DAPAGLIFLOZIN [Suspect]
     Active Substance: DAPAGLIFLOZIN
     Indication: Cardiac failure
     Route: 048
     Dates: start: 20211230, end: 20220929

REACTIONS (5)
  - Renal impairment [Not Recovered/Not Resolved]
  - Urosepsis [Not Recovered/Not Resolved]
  - Sluggishness [Unknown]
  - Fatigue [Unknown]
  - Urinary tract infection [Not Recovered/Not Resolved]

NARRATIVE: CASE EVENT DATE: 20220901
